FAERS Safety Report 8456449-3 (Version None)
Quarter: 2012Q2

REPORT INFORMATION
  Report Type: 
  Country: None (occurrence: None)
  Receive Date: 20120621
  Receipt Date: 20120608
  Transmission Date: 20120825
  Serious: Yes (Hospitalization)
  Sender: FDA-Public Use
  Company Number: US-WATSON-2012-08566

PATIENT
  Sex: Male
  Weight: 68 kg

DRUGS (8)
  1. VERAPAMIL HCL [Concomitant]
     Indication: PRODUCT USED FOR UNKNOWN INDICATION
     Dosage: UNK
     Route: 065
  2. MULTIVITAMIN                       /00097801/ [Concomitant]
     Indication: ROUTINE HEALTH MAINTENANCE
     Dosage: ONE TIME A DAY
     Route: 048
  3. BACLOFEN [Suspect]
     Indication: MUSCLE TWITCHING
     Dosage: ONE TABLET THREE TIMES A DAY
     Route: 048
     Dates: start: 20120301, end: 20120509
  4. BENADRYL [Concomitant]
     Indication: PRODUCT USED FOR UNKNOWN INDICATION
     Route: 065
  5. AMPYRA [Suspect]
     Indication: MULTIPLE SCLEROSIS
     Dosage: 10 MG TWICE DAILY
     Route: 048
     Dates: start: 20120419, end: 20120509
  6. WELLBUTRIN [Concomitant]
     Indication: MULTIPLE SCLEROSIS
     Dosage: 2 TIMES A DAY
     Route: 065
  7. PENICILLIN G POTASSIUM [Concomitant]
     Indication: PRODUCT USED FOR UNKNOWN INDICATION
     Dosage: UNK
     Route: 065
  8. REBIF [Concomitant]
     Indication: MULTIPLE SCLEROSIS
     Dosage: ONE SHOT MON, WED, FRI
     Route: 065

REACTIONS (7)
  - MENTAL STATUS CHANGES [None]
  - EYE DISORDER [None]
  - FATIGUE [None]
  - DISORIENTATION [None]
  - CONFUSIONAL STATE [None]
  - ABNORMAL BEHAVIOUR [None]
  - MEMORY IMPAIRMENT [None]
